FAERS Safety Report 11062075 (Version 12)
Quarter: 2017Q2

REPORT INFORMATION
  Report Type: Report from Study
  Country: IT (occurrence: IT)
  Receive Date: 20150424
  Receipt Date: 20170504
  Transmission Date: 20170829
  Serious: Yes (Death, Hospitalization)
  Sender: FDA-Public Use
  Company Number: IT-ROCHE-1531809

PATIENT
  Age: 74 Year
  Sex: Male
  Weight: 83 kg

DRUGS (54)
  1. BENDAMUSTINE [Suspect]
     Active Substance: BENDAMUSTINE
     Dosage: CYCLE 4 ON DAY 1
     Route: 042
     Dates: start: 20140715, end: 20140715
  2. IBRUTINIB [Suspect]
     Active Substance: IBRUTINIB
     Indication: CHRONIC LYMPHOCYTIC LEUKAEMIA
     Route: 048
     Dates: start: 20150112, end: 20150124
  3. ONDANSETRON [Concomitant]
     Active Substance: ONDANSETRON
     Indication: PROPHYLAXIS
     Route: 048
     Dates: start: 20140415, end: 20140421
  4. METHYLPREDNISOLONE. [Concomitant]
     Active Substance: METHYLPREDNISOLONE
     Route: 042
     Dates: start: 20140520, end: 20140520
  5. CHLORPHENAMINE [Concomitant]
     Active Substance: CHLORPHENIRAMINE MALEATE
     Indication: PROPHYLAXIS
     Route: 042
     Dates: start: 20140415, end: 20140415
  6. CHLORPHENAMINE [Concomitant]
     Active Substance: CHLORPHENIRAMINE MALEATE
     Route: 042
     Dates: start: 20140715, end: 20140715
  7. DEXAMETHASONE. [Concomitant]
     Active Substance: DEXAMETHASONE
     Route: 065
     Dates: start: 20150124, end: 20150302
  8. OBINUTUZUMAB [Suspect]
     Active Substance: OBINUTUZUMAB
     Dosage: CYCLE 1 ON DAY 8.
     Route: 042
     Dates: start: 20140422, end: 20140422
  9. OBINUTUZUMAB [Suspect]
     Active Substance: OBINUTUZUMAB
     Dosage: CYCLE 3 ON DAY 1.
     Route: 042
     Dates: start: 20140617, end: 20140617
  10. METHYLPREDNISOLONE. [Concomitant]
     Active Substance: METHYLPREDNISOLONE
     Route: 042
     Dates: start: 20140416, end: 20140416
  11. METHYLPREDNISOLONE. [Concomitant]
     Active Substance: METHYLPREDNISOLONE
     Route: 042
     Dates: start: 20140715, end: 20140715
  12. CHLORPHENAMINE [Concomitant]
     Active Substance: CHLORPHENIRAMINE MALEATE
     Route: 042
     Dates: start: 20140617, end: 20140617
  13. PARACETAMOL [Concomitant]
     Active Substance: ACETAMINOPHEN
     Route: 048
     Dates: start: 20140617, end: 20140617
  14. TAMSULOSIN [Concomitant]
     Active Substance: TAMSULOSIN
     Route: 048
     Dates: start: 20140513, end: 20150525
  15. ONDANSETRON [Concomitant]
     Active Substance: ONDANSETRON
     Route: 042
     Dates: start: 20140415, end: 20140416
  16. ONDANSETRON [Concomitant]
     Active Substance: ONDANSETRON
     Route: 042
     Dates: start: 20140617, end: 20140618
  17. CHLORPHENAMINE [Concomitant]
     Active Substance: CHLORPHENIRAMINE MALEATE
     Route: 042
     Dates: start: 20140422, end: 20140422
  18. PARACETAMOL [Concomitant]
     Active Substance: ACETAMINOPHEN
     Route: 048
     Dates: start: 20140422, end: 20140422
  19. PARACETAMOL [Concomitant]
     Active Substance: ACETAMINOPHEN
     Route: 048
     Dates: start: 20140429, end: 20140429
  20. PARACETAMOL [Concomitant]
     Active Substance: ACETAMINOPHEN
     Route: 048
     Dates: start: 20140715, end: 20140715
  21. OMNIC [Concomitant]
     Active Substance: TAMSULOSIN HYDROCHLORIDE
     Route: 048
     Dates: start: 20140513
  22. OMNIC [Concomitant]
     Active Substance: TAMSULOSIN HYDROCHLORIDE
     Route: 048
     Dates: start: 20150124, end: 20150203
  23. FINASTERIDE. [Concomitant]
     Active Substance: FINASTERIDE
     Route: 030
     Dates: start: 20140513, end: 20150525
  24. OBINUTUZUMAB [Suspect]
     Active Substance: OBINUTUZUMAB
     Indication: CHRONIC LYMPHOCYTIC LEUKAEMIA
     Dosage: CYCLE 1 ON DAY 1.
     Route: 042
     Dates: start: 20140415, end: 20140415
  25. OBINUTUZUMAB [Suspect]
     Active Substance: OBINUTUZUMAB
     Dosage: CYCLE 1 ON DAY 15.
     Route: 042
     Dates: start: 20140429, end: 20140429
  26. BENDAMUSTINE [Suspect]
     Active Substance: BENDAMUSTINE
     Indication: CHRONIC LYMPHOCYTIC LEUKAEMIA
     Dosage: CYCLE 1 ON DAY 1
     Route: 042
     Dates: start: 20140415, end: 20140415
  27. BENDAMUSTINE [Suspect]
     Active Substance: BENDAMUSTINE
     Dosage: CYCLE 1 ON DAY 2
     Route: 042
     Dates: start: 20140416, end: 20140416
  28. BENDAMUSTINE [Suspect]
     Active Substance: BENDAMUSTINE
     Dosage: CYCLE 4 ON DAY 2
     Route: 042
     Dates: start: 20140716, end: 20140716
  29. ZOLPIDEM [Concomitant]
     Active Substance: ZOLPIDEM\ZOLPIDEM TARTRATE
     Route: 048
     Dates: start: 20140416, end: 20150525
  30. CHLORPHENAMINE [Concomitant]
     Active Substance: CHLORPHENIRAMINE MALEATE
     Route: 042
     Dates: start: 20140429, end: 20140429
  31. PARACETAMOL [Concomitant]
     Active Substance: ACETAMINOPHEN
     Route: 048
     Dates: start: 20140416, end: 20140416
  32. OBINUTUZUMAB [Suspect]
     Active Substance: OBINUTUZUMAB
     Dosage: CYCLE 4 ON DAY 1.DATE OF LAST DOSE PRIOR TO EVENT ONSET 24/JAN/2015.
     Route: 042
     Dates: end: 20150124
  33. BENDAMUSTINE [Suspect]
     Active Substance: BENDAMUSTINE
     Dosage: CYCLE 2 ON DAY 1
     Route: 042
     Dates: start: 20140520, end: 20140520
  34. BENDAMUSTINE [Suspect]
     Active Substance: BENDAMUSTINE
     Dosage: CYCLE 3 ON DAY 2
     Route: 042
     Dates: start: 20140618, end: 20140618
  35. LEVOFLOXACIN. [Concomitant]
     Active Substance: LEVOFLOXACIN
     Route: 048
     Dates: start: 20140503, end: 20140516
  36. LANSOPRAZOLE. [Concomitant]
     Active Substance: LANSOPRAZOLE
     Indication: PROPHYLAXIS
     Route: 048
     Dates: start: 20140415
  37. ONDANSETRON [Concomitant]
     Active Substance: ONDANSETRON
     Route: 042
     Dates: start: 20140520, end: 20140521
  38. METHYLPREDNISOLONE. [Concomitant]
     Active Substance: METHYLPREDNISOLONE
     Route: 042
     Dates: start: 20140422, end: 20140422
  39. METHYLPREDNISOLONE. [Concomitant]
     Active Substance: METHYLPREDNISOLONE
     Route: 042
     Dates: start: 20140429, end: 20140429
  40. CHLORPHENAMINE [Concomitant]
     Active Substance: CHLORPHENIRAMINE MALEATE
     Route: 042
     Dates: start: 20140520, end: 20140520
  41. METHYLPREDNISOLONE. [Concomitant]
     Active Substance: METHYLPREDNISOLONE
     Indication: PROPHYLAXIS
     Route: 042
     Dates: start: 20140415, end: 20140415
  42. CHLORPHENAMINE [Concomitant]
     Active Substance: CHLORPHENIRAMINE MALEATE
     Route: 042
     Dates: start: 20140416, end: 20140416
  43. OBINUTUZUMAB [Suspect]
     Active Substance: OBINUTUZUMAB
     Dosage: CYCLE 1 ON DAY 2.
     Route: 042
     Dates: start: 20140416, end: 20140416
  44. OBINUTUZUMAB [Suspect]
     Active Substance: OBINUTUZUMAB
     Dosage: CYCLE 4 ON DAY 1.DATE OF LAST DOSE PRIOR TO EVENT ONSET 24/JAN/2015.
     Route: 042
     Dates: start: 20140715, end: 20140715
  45. LEVOFLOXACIN. [Concomitant]
     Active Substance: LEVOFLOXACIN
     Route: 048
     Dates: start: 20140415, end: 20140415
  46. BACTRIM [Concomitant]
     Active Substance: SULFAMETHOXAZOLE\TRIMETHOPRIM
     Indication: PROPHYLAXIS
     Dosage: TAKEN ON SATURDAY AND SUNDAY
     Route: 048
     Dates: start: 20140415
  47. VALACICLOVIR [Concomitant]
     Active Substance: VALACYCLOVIR HYDROCHLORIDE
     Indication: PROPHYLAXIS
     Route: 048
     Dates: start: 20140415
  48. PARACETAMOL [Concomitant]
     Active Substance: ACETAMINOPHEN
     Indication: PROPHYLAXIS
     Route: 048
     Dates: start: 20140415, end: 20140415
  49. OBINUTUZUMAB [Suspect]
     Active Substance: OBINUTUZUMAB
     Dosage: CYCLE 2 ON DAY 1.
     Route: 042
     Dates: start: 20140520, end: 20140520
  50. BENDAMUSTINE [Suspect]
     Active Substance: BENDAMUSTINE
     Dosage: CYCLE 2 ON DAY 2
     Route: 042
     Dates: start: 20140521, end: 20140521
  51. BENDAMUSTINE [Suspect]
     Active Substance: BENDAMUSTINE
     Dosage: CYCLE 3 ON DAY 1
     Route: 042
     Dates: start: 20140617, end: 20140617
  52. ONDANSETRON [Concomitant]
     Active Substance: ONDANSETRON
     Route: 042
     Dates: start: 20140715, end: 20140716
  53. METHYLPREDNISOLONE. [Concomitant]
     Active Substance: METHYLPREDNISOLONE
     Route: 042
     Dates: start: 20140617, end: 20140617
  54. PARACETAMOL [Concomitant]
     Active Substance: ACETAMINOPHEN
     Route: 048
     Dates: start: 20140520, end: 20140520

REACTIONS (2)
  - Cerebral haemorrhage [Recovered/Resolved]
  - Adenocarcinoma [Fatal]

NARRATIVE: CASE EVENT DATE: 20150124
